FAERS Safety Report 7142282-1 (Version None)
Quarter: 2010Q4

REPORT INFORMATION
  Report Type: 
  Country: None (occurrence: None)
  Receive Date: 20101207
  Receipt Date: 20101130
  Transmission Date: 20110411
  Serious: No
  Sender: FDA-Public Use
  Company Number: US-PFIZER INC-2010160806

PATIENT
  Sex: Female
  Weight: 132 kg

DRUGS (13)
  1. NEURONTIN [Suspect]
     Indication: NEUROPATHY PERIPHERAL
     Dosage: UNK
  2. CYMBALTA [Concomitant]
     Indication: NEUROPATHY PERIPHERAL
     Dosage: 60 MG, UNK
  3. CYMBALTA [Concomitant]
     Indication: DEPRESSION
  4. MICARDIS [Concomitant]
     Indication: HYPERTENSION
     Dosage: 80 MG, UNK
  5. KLOR-CON [Concomitant]
     Indication: BLOOD POTASSIUM
     Dosage: 10 MG, 2X/DAY
     Route: 048
  6. LASIX [Concomitant]
     Indication: DIABETES MELLITUS
     Dosage: 20 MG, 1X/DAY
     Route: 048
  7. LASIX [Concomitant]
     Indication: NEUROPATHY PERIPHERAL
  8. GLIMEPIRIDE [Concomitant]
     Indication: DIABETES MELLITUS
     Dosage: 2 MG, 2X/DAY
     Route: 048
  9. AMLODIPINE [Concomitant]
     Indication: HYPERTENSION
     Dosage: 5 MG, 1X/DAY
     Route: 048
  10. INSULIN DETEMIR [Concomitant]
     Indication: DIABETES MELLITUS
     Dosage: 25 IU, 1X/DAY
  11. ACETYLSALICYLIC ACID [Concomitant]
     Indication: HYPERTENSION
     Dosage: 81 MG, 1X/DAY
     Route: 048
  12. OXYCONTIN [Concomitant]
     Indication: PAIN
     Dosage: 30 MG, 1X/DAY
     Route: 048
  13. PERCOCET [Concomitant]
     Indication: PAIN
     Dosage: 10/325 MG DAILY
     Route: 048

REACTIONS (1)
  - DRUG INEFFECTIVE [None]
